FAERS Safety Report 17448419 (Version 1)
Quarter: 2020Q1

REPORT INFORMATION
  Report Type: Report from Study
  Country: AU (occurrence: AU)
  Receive Date: 20200223
  Receipt Date: 20200223
  Transmission Date: 20200409
  Serious: Yes (Hospitalization)
  Sender: FDA-Public Use
  Company Number: AU-BEIGENE AUS PTY LTD-BGN-2019-001368

PATIENT

DRUGS (10)
  1. BGB-3111 [Suspect]
     Active Substance: ZANUBRUTINIB
     Indication: CHRONIC LYMPHOCYTIC LEUKAEMIA REFRACTORY
     Dosage: 160 MILLIGRAM, BID
     Route: 048
     Dates: start: 20170424
  2. IBUPROFEN. [Concomitant]
     Active Substance: IBUPROFEN
     Indication: BACK PAIN
     Dosage: 200MG 1-2 TABLETS 4 HOURLY PRN
     Route: 048
     Dates: start: 20180131, end: 20190611
  3. CALCIUM [Concomitant]
     Active Substance: CALCIUM
     Indication: MINERAL SUPPLEMENTATION
     Dosage: 250 MILLIGRAM, QD 2 TAB DAILY
     Route: 048
     Dates: start: 2005
  4. THYROXINE [Concomitant]
     Active Substance: LEVOTHYROXINE
     Indication: HYPOTHYROIDISM
     Dosage: 50MCG 2 TAB PO BID
     Route: 048
     Dates: start: 20180910
  5. LOPERAMIDE [Concomitant]
     Active Substance: LOPERAMIDE
     Indication: DIARRHOEA
     Dosage: 2-3 TABS PO QD PRN
     Route: 048
     Dates: start: 2010
  6. FOSAMAX [Concomitant]
     Active Substance: ALENDRONATE SODIUM
     Indication: OSTEOPOROSIS
     Dosage: 70MG  PO WEEKLY
     Route: 048
     Dates: start: 20190328
  7. PANADEINE FORTE [Concomitant]
     Active Substance: ACETAMINOPHEN\CODEINE PHOSPHATE
     Indication: BACK PAIN
     Dosage: 1-2 TAB PO 4 HOURLY PRN
     Route: 048
     Dates: start: 201601
  8. VITAMIN C [Concomitant]
     Active Substance: ASCORBIC ACID
     Indication: PROPHYLAXIS
     Dosage: 500MG PO OD
     Route: 048
     Dates: start: 20190328
  9. PAROXETINE. [Concomitant]
     Active Substance: PAROXETINE
     Indication: ANXIETY
     Dosage: 20 MILLIGRAM, QD
     Route: 048
     Dates: start: 200412
  10. PARACETAMOL [Concomitant]
     Active Substance: ACETAMINOPHEN
     Indication: PAIN
     Dosage: 500MG 1-2 TABLETS PRN
     Route: 048

REACTIONS (1)
  - Atrial fibrillation [Recovered/Resolved]

NARRATIVE: CASE EVENT DATE: 20190730
